FAERS Safety Report 8959283 (Version 1)
Quarter: 2012Q4

REPORT INFORMATION
  Report Type: 
  Country: SE (occurrence: SE)
  Receive Date: 20121212
  Receipt Date: 20121212
  Transmission Date: 20130627
  Serious: Yes (Hospitalization)
  Sender: FDA-Public Use
  Company Number: SE-ASTRAZENECA-2012SE91156

PATIENT
  Age: 85 Year
  Sex: Male

DRUGS (12)
  1. PLENDIL [Suspect]
     Route: 048
  2. OMEPRAZOLE [Concomitant]
  3. ACTOS [Concomitant]
  4. PRIMPERAN [Concomitant]
  5. METOPROLOL [Concomitant]
  6. ENALAPRIL [Concomitant]
  7. SIMVASTATIN [Concomitant]
  8. SALURES [Concomitant]
  9. WARAN [Concomitant]
  10. GIBENKLAMIB [Concomitant]
  11. XATRAL [Concomitant]
  12. DIGOXIN [Concomitant]

REACTIONS (5)
  - Hypotension [Recovered/Resolved]
  - Chest pain [Unknown]
  - Abdominal pain [Unknown]
  - Heart rate increased [Unknown]
  - Diverticulum [Unknown]
